FAERS Safety Report 24636143 (Version 1)
Quarter: 2024Q4

REPORT INFORMATION
  Report Type: Spontaneous
  Country: SY (occurrence: SY)
  Receive Date: 20241119
  Receipt Date: 20241119
  Transmission Date: 20250115
  Serious: Yes (Other)
  Sender: RANBAXY
  Company Number: SY-SUN PHARMACEUTICAL INDUSTRIES LTD-2024R1-479325

PATIENT
  Age: 32 Year
  Sex: Male

DRUGS (4)
  1. METHOTREXATE [Suspect]
     Active Substance: METHOTREXATE
     Indication: Ankylosing spondylitis
     Dosage: 10 MILLIGRAM, WEEKLY
     Route: 065
  2. NAPROXEN [Suspect]
     Active Substance: NAPROXEN
     Indication: Ankylosing spondylitis
     Dosage: 500 MILLIGRAM, DAILY
     Route: 065
  3. ADALIMUMAB [Suspect]
     Active Substance: ADALIMUMAB
     Indication: Ankylosing spondylitis
     Dosage: 40 MILLIGRAM/ 2 WEEKS
     Route: 058
  4. INFLIXIMAB [Suspect]
     Active Substance: INFLIXIMAB
     Indication: Ankylosing spondylitis
     Dosage: 7.5 MILLIGRAM/KILOGRAM
     Route: 065

REACTIONS (1)
  - Therapy non-responder [Unknown]
